FAERS Safety Report 8196578-5 (Version None)
Quarter: 2012Q1

REPORT INFORMATION
  Report Type: 
  Country: None (occurrence: None)
  Receive Date: 20120309
  Receipt Date: 20111013
  Transmission Date: 20120608
  Serious: Yes (Other)
  Sender: FDA-Public Use
  Company Number: DE-US-EMD SERONO, INC.-7116961

PATIENT

DRUGS (1)
  1. REBIF [Suspect]
     Indication: RELAPSING-REMITTING MULTIPLE SCLEROSIS

REACTIONS (5)
  - WEIGHT DECREASED [None]
  - MENTAL DISORDER [None]
  - PAIN IN EXTREMITY [None]
  - DYSPNOEA [None]
  - ASTHENIA [None]
